FAERS Safety Report 23962438 (Version 1)
Quarter: 2024Q2

REPORT INFORMATION
  Report Type: Spontaneous
  Country: US (occurrence: US)
  Receive Date: 20240611
  Receipt Date: 20240611
  Transmission Date: 20240716
  Serious: No
  Sender: FDA-Public Use
  Company Number: US-PFIZER INC-PV202400074302

PATIENT
  Age: 22 Year
  Sex: Female

DRUGS (4)
  1. CIBINQO [Suspect]
     Active Substance: ABROCITINIB
     Indication: Eczema
     Dosage: 100 MG, DAILY
     Route: 048
     Dates: start: 20230822
  2. CIMETIDINE [Concomitant]
     Active Substance: CIMETIDINE
     Dosage: 200 MG, DAILY
     Route: 048
  3. CRESTOR [Concomitant]
     Active Substance: ROSUVASTATIN CALCIUM
     Dosage: 10 MG, DAILY
     Route: 048
  4. SERTRALINE [Concomitant]
     Active Substance: SERTRALINE HYDROCHLORIDE
     Dosage: 200 MG, DAILY
     Route: 048

REACTIONS (1)
  - Acne [Unknown]
